FAERS Safety Report 21214794 (Version 1)
Quarter: 2022Q3

REPORT INFORMATION
  Report Type: Spontaneous
  Country: US (occurrence: US)
  Receive Date: 20220816
  Receipt Date: 20220816
  Transmission Date: 20221026
  Serious: No
  Sender: FDA-Public Use
  Company Number: US-Calliditas-2022CAL00261

PATIENT
  Age: 33 Year
  Sex: Male

DRUGS (1)
  1. TARPEYO [Suspect]
     Active Substance: BUDESONIDE
     Indication: Haematuria
     Dosage: 4MG (4MG CAPSULE) ONCE DAILY
     Route: 048
     Dates: start: 20220706

REACTIONS (2)
  - Prescribed underdose [Unknown]
  - COVID-19 [Unknown]
